FAERS Safety Report 19007284 (Version 1)
Quarter: 2021Q1

REPORT INFORMATION
  Report Type: Spontaneous
  Country: CN (occurrence: CN)
  Receive Date: 20210315
  Receipt Date: 20210315
  Transmission Date: 20210420
  Serious: Yes (Other)
  Sender: FDA-Public Use
  Company Number: CN-SUN PHARMACEUTICAL INDUSTRIES LTD-2021R1-285499

PATIENT
  Age: 55 Year
  Sex: Male

DRUGS (4)
  1. CYCLOPHOSPHAMIDE. [Concomitant]
     Active Substance: CYCLOPHOSPHAMIDE
     Indication: PERIPHERAL T-CELL LYMPHOMA UNSPECIFIED STAGE IV
     Dosage: 0.6 GRAM , D1,8
     Route: 065
  2. VINCRISTINE [Concomitant]
     Active Substance: VINCRISTINE
     Indication: PERIPHERAL T-CELL LYMPHOMA UNSPECIFIED STAGE IV
     Dosage: 2 MILLIGRAM , D8
     Route: 065
  3. PREDNISONE. [Suspect]
     Active Substance: PREDNISONE
     Indication: PERIPHERAL T-CELL LYMPHOMA UNSPECIFIED STAGE IV
     Dosage: 100 MILLIGRAM , D1?5
     Route: 048
  4. EPIRUBICIN [Concomitant]
     Active Substance: EPIRUBICIN
     Indication: PERIPHERAL T-CELL LYMPHOMA UNSPECIFIED STAGE IV
     Dosage: 80 MILLIGRAM , D1
     Route: 065

REACTIONS (2)
  - Dysphagia [Recovered/Resolved]
  - Dyspnoea [Recovering/Resolving]
